FAERS Safety Report 4979215-X (Version None)
Quarter: 2006Q2

REPORT INFORMATION
  Report Type: 
  Country: None (occurrence: None)
  Receive Date: 20060421
  Receipt Date: 20060313
  Transmission Date: 20061013
  Serious: Yes (Death, Hospitalization, Other)
  Sender: FDA-Public Use
  Company Number: 2006AC00436

PATIENT
  Age: 64 Year
  Sex: Male
  Weight: 73 kg

DRUGS (4)
  1. CRESTOR [Suspect]
     Route: 048
     Dates: start: 20051124, end: 20051214
  2. TILDIEM 200 R [Concomitant]
     Indication: ANGINA PECTORIS
     Route: 048
     Dates: start: 19980101
  3. VISKEN 5 [Concomitant]
     Indication: ANGINA PECTORIS
     Route: 048
     Dates: start: 19980101
  4. LORMETAZEPAM EG [Concomitant]
     Indication: INSOMNIA
     Route: 048
     Dates: start: 19960101

REACTIONS (21)
  - ACUTE MYOCARDIAL INFARCTION [None]
  - AKINESIA [None]
  - ATRIAL FIBRILLATION [None]
  - CARDIAC FAILURE ACUTE [None]
  - CHEST PAIN [None]
  - DEHYDRATION [None]
  - DILATATION VENTRICULAR [None]
  - FLUID OVERLOAD [None]
  - INFLAMMATION [None]
  - MITRAL VALVE INCOMPETENCE [None]
  - MYALGIA [None]
  - MYOCARDIAL INFARCTION [None]
  - NEUTROPHIL PERCENTAGE INCREASED [None]
  - PULMONARY HYPERTENSION [None]
  - PULMONARY OEDEMA [None]
  - RENAL FAILURE [None]
  - RHABDOMYOLYSIS [None]
  - TREATMENT NONCOMPLIANCE [None]
  - VENTRICULAR HYPOKINESIA [None]
  - VOMITING [None]
  - WHITE BLOOD CELL COUNT INCREASED [None]
